FAERS Safety Report 5190834-0 (Version None)
Quarter: 2006Q4

REPORT INFORMATION
  Report Type: 
  Country: None (occurrence: None)
  Receive Date: 20061215
  Receipt Date: 20061208
  Transmission Date: 20070319
  Serious: Yes (Life-Threatening)
  Sender: FDA-Public Use
  Company Number: 2006-151689-NL

PATIENT
  Age: 70 Year
  Sex: Female

DRUGS (6)
  1. MIRTAZAPINE [Suspect]
     Indication: DEPRESSED MOOD
     Dosage: DF, ORAL
     Route: 048
     Dates: start: 20060818, end: 20061108
  2. AMISULPRIDE [Concomitant]
  3. DOXAZOSIN MESYLATE [Concomitant]
  4. HYPROMELLOSE [Concomitant]
  5. MEMANTINE HCL [Concomitant]
  6. PERINDOPRIL ERBUMINE [Concomitant]

REACTIONS (5)
  - LEUKOPENIA [None]
  - NEUTROPENIA [None]
  - PLATELET COUNT DECREASED [None]
  - RED BLOOD CELL ABNORMALITY [None]
  - RED BLOOD CELL SCHISTOCYTES PRESENT [None]
